FAERS Safety Report 7660939-0 (Version None)
Quarter: 2011Q3

REPORT INFORMATION
  Report Type: 
  Country: None (occurrence: None)
  Receive Date: 20110805
  Receipt Date: 20100927
  Transmission Date: 20111222
  Serious: No
  Sender: FDA-Public Use
  Company Number: US-ABBOTT-10P-163-0674689-00

PATIENT
  Sex: Female
  Weight: 72.64 kg

DRUGS (10)
  1. PLAVIX [Concomitant]
     Indication: STENT PLACEMENT
     Route: 048
     Dates: start: 20090601
  2. ASPIRIN [Concomitant]
     Indication: PROPHYLAXIS
     Route: 048
  3. SIMVASTATIN [Concomitant]
     Indication: PRODUCT USED FOR UNKNOWN INDICATION
     Route: 048
  4. CITRACAL [Concomitant]
     Indication: VITAMIN SUPPLEMENTATION
     Route: 048
  5. FEXOFENADINE [Concomitant]
     Indication: HYPERSENSITIVITY
     Route: 048
  6. MICARDIS [Concomitant]
     Indication: BLOOD PRESSURE
     Route: 048
  7. MULTI-VITAMIN [Concomitant]
     Indication: VITAMIN SUPPLEMENTATION
     Route: 048
  8. NIASPAN [Suspect]
     Indication: HIGH DENSITY LIPOPROTEIN DECREASED
     Route: 048
     Dates: start: 20100401, end: 20100401
  9. METOPROLOL TARTRATE [Concomitant]
     Indication: CARDIAC DISORDER
     Route: 048
     Dates: start: 20090601
  10. NIASPAN [Suspect]
     Route: 048
     Dates: start: 20100401

REACTIONS (2)
  - FLUSHING [None]
  - PRURITUS [None]
